FAERS Safety Report 13126357 (Version 4)
Quarter: 2017Q1

REPORT INFORMATION
  Report Type: Report from Study
  Country: ES (occurrence: ES)
  Receive Date: 20170118
  Receipt Date: 20170228
  Transmission Date: 20170428
  Serious: Yes (Hospitalization)
  Sender: FDA-Public Use
  Company Number: ES-ROCHE-1878525

PATIENT
  Age: 72 Year
  Sex: Female
  Weight: 59.7 kg

DRUGS (11)
  1. PAROXETINE. [Concomitant]
     Active Substance: PAROXETINE
     Indication: DEPRESSION
  2. SIMVASTATIN. [Concomitant]
     Active Substance: SIMVASTATIN
  3. CARBOPLATIN. [Suspect]
     Active Substance: CARBOPLATIN
     Indication: NON-SMALL CELL LUNG CANCER STAGE IV
     Dosage: TARGET AUC = 6 MG/ML/MIN?LAST DOSE (624 MG) ADMINISTERED ON 18/MAY/2016, PRIOR TO THE EVENT
     Route: 042
     Dates: start: 20160307, end: 20160518
  4. PARACETAMOL [Concomitant]
     Active Substance: ACETAMINOPHEN
     Indication: HEADACHE
     Route: 065
     Dates: start: 20161201
  5. OMEPRAZOLE. [Concomitant]
     Active Substance: OMEPRAZOLE
     Indication: PROPHYLAXIS
     Route: 065
     Dates: start: 20160307
  6. ATEZOLIZUMAB [Suspect]
     Active Substance: ATEZOLIZUMAB
     Indication: NON-SMALL CELL LUNG CANCER STAGE IV
     Dosage: MOST RECENT DOSE PRIOR TO THE EVENT ADMINISTERED ON 21/DEC/2016
     Route: 042
     Dates: start: 20160307
  7. NOLOTIL [Concomitant]
     Active Substance: METAMIZOLE
     Indication: HEADACHE
     Route: 065
     Dates: start: 20161202
  8. PACLITAXEL. [Suspect]
     Active Substance: PACLITAXEL
     Indication: NON-SMALL CELL LUNG CANCER STAGE IV
     Dosage: LAST DOSE (324 MG) ADMINISTERED ON 18/MAY/2016, PRIOR TO THE EVENT
     Route: 042
     Dates: start: 20160307, end: 20160518
  9. DULCOLAXO [Concomitant]
     Indication: CONSTIPATION
     Route: 065
     Dates: start: 20160922
  10. PRIMPERAN [Concomitant]
     Active Substance: METOCLOPRAMIDE HYDROCHLORIDE
     Indication: NAUSEA
     Route: 065
     Dates: start: 20161129
  11. LORAZEPAM. [Concomitant]
     Active Substance: LORAZEPAM
     Indication: DEPRESSION

REACTIONS (1)
  - Cognitive disorder [Not Recovered/Not Resolved]

NARRATIVE: CASE EVENT DATE: 20170110
